FAERS Safety Report 4890878-X (Version None)
Quarter: 2006Q1

REPORT INFORMATION
  Report Type: 
  Country: None (occurrence: None)
  Receive Date: 20060123
  Receipt Date: 20060116
  Transmission Date: 20060701
  Serious: Yes (Hospitalization)
  Sender: FDA-Public Use
  Company Number: 2005AL003836

PATIENT
  Age: 84 Year
  Sex: Female
  Weight: 70.3075 kg

DRUGS (6)
  1. DILTIAZEM HYDROCHLORIDE [Suspect]
     Dosage: 120 MG;QD;PO
     Route: 048
     Dates: start: 20050820, end: 20050915
  2. THYROXINE [Concomitant]
  3. ELAVIL [Concomitant]
  4. ICAPS [Concomitant]
  5. ACTONEL [Concomitant]
  6. GLUCOSAMINE W/CHONDROITIN [Concomitant]

REACTIONS (5)
  - FALL [None]
  - HEART RATE INCREASED [None]
  - INJURY [None]
  - LOSS OF CONSCIOUSNESS [None]
  - PELVIC FRACTURE [None]
